FAERS Safety Report 4764285-4 (Version None)
Quarter: 2005Q3

REPORT INFORMATION
  Report Type: 
  Country: None (occurrence: None)
  Receive Date: 20050909
  Receipt Date: 20030521
  Transmission Date: 20060218
  Serious: Yes (Hospitalization)
  Sender: FDA-Public Use
  Company Number: JP-BOEHRINGER INGELHEIM PHARMACEUTICALS, INC.-2003-BP-03427NB

PATIENT
  Sex: Female
  Weight: 47 kg

DRUGS (4)
  1. PERSANTIN [Suspect]
     Indication: ARRHYTHMIA
     Route: 048
     Dates: start: 20000907, end: 20030301
  2. MUCOSOLVON [Suspect]
     Indication: BRONCHITIS CHRONIC
     Route: 048
     Dates: start: 20000907, end: 20030301
  3. LOXONIN [Suspect]
     Indication: OSTEOARTHRITIS
     Route: 048
     Dates: start: 20020924, end: 20030301
  4. GLUCOSAMINE (HEALTHY SUPPLEMENT FOOD) [Suspect]
     Indication: OSTEOARTHRITIS
     Route: 048
     Dates: start: 20021001, end: 20030301

REACTIONS (3)
  - ASCITES [None]
  - EOSINOPHILIA [None]
  - GASTROENTERITIS EOSINOPHILIC [None]
